FAERS Safety Report 20708517 (Version 1)
Quarter: 2022Q2

REPORT INFORMATION
  Report Type: Spontaneous
  Country: FR (occurrence: FR)
  Receive Date: 20220414
  Receipt Date: 20220414
  Transmission Date: 20220720
  Serious: Yes (Hospitalization, Other)
  Sender: FDA-Public Use
  Company Number: FR-AFSSAPS-GR20220947

PATIENT
  Age: 29 Year
  Sex: Female
  Weight: 64 kg

DRUGS (1)
  1. LEVOFLOXACIN [Suspect]
     Active Substance: LEVOFLOXACIN
     Indication: Intervertebral discitis
     Dosage: 750 MILLIGRAM
     Route: 048
     Dates: start: 20220225, end: 20220307

REACTIONS (1)
  - Tonic clonic movements [Recovered/Resolved with Sequelae]

NARRATIVE: CASE EVENT DATE: 20220305
